FAERS Safety Report 26033186 (Version 1)
Quarter: 2025Q4

REPORT INFORMATION
  Report Type: Spontaneous
  Country: CN (occurrence: CN)
  Receive Date: 20251112
  Receipt Date: 20251112
  Transmission Date: 20260119
  Serious: Yes (Other)
  Sender: MACLEODS
  Company Number: CN-MACLEODS PHARMA-MAC2025056146

PATIENT

DRUGS (5)
  1. METHIMAZOLE [Suspect]
     Active Substance: METHIMAZOLE
     Indication: Hyperthyroidism
     Route: 048
  2. METHIMAZOLE [Suspect]
     Active Substance: METHIMAZOLE
     Route: 048
  3. PROPRANOLOL [Concomitant]
     Active Substance: PROPRANOLOL HYDROCHLORIDE
     Indication: Hyperthyroidism
     Route: 048
  4. PROPRANOLOL [Concomitant]
     Active Substance: PROPRANOLOL HYDROCHLORIDE
     Route: 048
  5. Dipotassium glycyrrhizinate/polyene phosphatidylcholine [Concomitant]
     Indication: Product used for unknown indication
     Route: 042

REACTIONS (3)
  - Antithyroid arthritis syndrome [Recovered/Resolved]
  - Pruritus [Recovering/Resolving]
  - Rash [Recovering/Resolving]
